FAERS Safety Report 5141134-6 (Version None)
Quarter: 2006Q4

REPORT INFORMATION
  Report Type: 
  Country: None (occurrence: None)
  Receive Date: 20061026
  Receipt Date: 20061019
  Transmission Date: 20070319
  Serious: Yes (Hospitalization)
  Sender: FDA-Public Use
  Company Number: 2006-05475

PATIENT
  Age: 6 Year
  Sex: Male

DRUGS (1)
  1. PENICILLIN G POTASSIUM [Suspect]
     Indication: UPPER RESPIRATORY TRACT INFECTION
     Dates: start: 20060101, end: 20060101

REACTIONS (1)
  - NEPHRITIS INTERSTITIAL [None]
